FAERS Safety Report 13558034 (Version 13)
Quarter: 2020Q1

REPORT INFORMATION
  Report Type: Spontaneous
  Country: US (occurrence: US)
  Receive Date: 20170518
  Receipt Date: 20200327
  Transmission Date: 20200409
  Serious: Yes (Hospitalization, Other)
  Sender: FDA-Public Use
  Company Number: US-GLAXOSMITHKLINE-US2017069462

PATIENT
  Sex: Female

DRUGS (4)
  1. SORIATANE [Suspect]
     Active Substance: ACITRETIN
     Indication: PRODUCT USED FOR UNKNOWN INDICATION
     Dosage: UNK
     Route: 065
     Dates: start: 2010
  2. SORIATANE [Suspect]
     Active Substance: ACITRETIN
     Indication: SKIN DISORDER
  3. SORIATANE [Suspect]
     Active Substance: ACITRETIN
     Indication: KERATOSIS FOLLICULAR
     Dosage: 20 MG, 1D
     Route: 048
     Dates: start: 2006
  4. SORIATANE [Suspect]
     Active Substance: ACITRETIN
     Indication: PSORIASIS
     Dosage: 10 MG, 1D
     Route: 048
     Dates: start: 2009

REACTIONS (9)
  - Skin infection [Recovering/Resolving]
  - Cellulitis [Unknown]
  - Product dose omission [Unknown]
  - Skin ulcer [Unknown]
  - Staphylococcal infection [Unknown]
  - Swelling [Unknown]
  - Skin erosion [Unknown]
  - Infection [Unknown]
  - Seizure [Unknown]

NARRATIVE: CASE EVENT DATE: 2017
